FAERS Safety Report 23797497 (Version 1)
Quarter: 2024Q2

REPORT INFORMATION
  Report Type: Spontaneous
  Country: ES (occurrence: ES)
  Receive Date: 20240430
  Receipt Date: 20240430
  Transmission Date: 20240715
  Serious: Yes (Other)
  Sender: FDA-Public Use
  Company Number: ES-SA-SAC20240409000891

PATIENT
  Age: 6 Year
  Sex: Male

DRUGS (3)
  1. MYOZYME [Suspect]
     Active Substance: ALGLUCOSIDASE ALFA
     Indication: Glycogen storage disease type II
     Dosage: 20 MG/KG
     Route: 042
     Dates: start: 2010
  2. MYOZYME [Suspect]
     Active Substance: ALGLUCOSIDASE ALFA
     Dosage: 40 MG/KG, QOW
     Route: 042
     Dates: start: 2016
  3. MIGLUSTAT [Concomitant]
     Active Substance: MIGLUSTAT
     Indication: Glycogen storage disease type II
     Dosage: UNK

REACTIONS (5)
  - Respiratory depression [Unknown]
  - Weight gain poor [Recovering/Resolving]
  - Hypokinesia [Recovering/Resolving]
  - Off label use [Unknown]
  - Drug ineffective [Unknown]

NARRATIVE: CASE EVENT DATE: 20160101
